FAERS Safety Report 15839041 (Version 1)
Quarter: 2019Q1

REPORT INFORMATION
  Report Type: Spontaneous
  Country: HR (occurrence: HR)
  Receive Date: 20190117
  Receipt Date: 20190117
  Transmission Date: 20190417
  Serious: Yes (Other)
  Sender: FDA-Public Use
  Company Number: HR-SAKK-2019SA010732AA

PATIENT
  Age: 31 Year
  Sex: Female

DRUGS (6)
  1. MAGNESIUM SULFATE. [Suspect]
     Active Substance: MAGNESIUM SULFATE
     Indication: PROPHYLAXIS
     Dosage: UNK
     Route: 042
     Dates: start: 20180821, end: 20180830
  2. CLEXANE [Suspect]
     Active Substance: ENOXAPARIN SODIUM
     Indication: THROMBOSIS PROPHYLAXIS
     Dosage: 0.2; 1X1
     Route: 058
     Dates: start: 20180825, end: 20180903
  3. EBRANTIL [URAPIDIL] [Suspect]
     Active Substance: URAPIDIL
     Indication: HELLP SYNDROME
     Dosage: UNK
     Route: 042
     Dates: start: 20180821, end: 20180830
  4. METHYLDOPA. [Suspect]
     Active Substance: METHYLDOPA
     Indication: HELLP SYNDROME
     Dosage: 4X2
     Route: 048
     Dates: start: 20180819, end: 20180920
  5. DEXAMETHASONE. [Suspect]
     Active Substance: DEXAMETHASONE
     Indication: MATERNAL THERAPY TO ENHANCE FOETAL LUNG MATURITY
     Dosage: 1X
     Route: 030
  6. DIAZEPAM. [Suspect]
     Active Substance: DIAZEPAM
     Indication: HELLP SYNDROME
     Dosage: UNSPECIFIED
     Dates: start: 20180819, end: 20180831

REACTIONS (6)
  - Malaise [Recovered/Resolved]
  - Exposure during pregnancy [Unknown]
  - Drug ineffective [Unknown]
  - Fatigue [Recovered/Resolved]
  - Asthenia [Recovered/Resolved]
  - Dry eye [Unknown]

NARRATIVE: CASE EVENT DATE: 20180819
